FAERS Safety Report 16608794 (Version 1)
Quarter: 2019Q3

REPORT INFORMATION
  Report Type: Spontaneous
  Country: HR (occurrence: HR)
  Receive Date: 20190722
  Receipt Date: 20190722
  Transmission Date: 20191004
  Serious: Yes (Hospitalization, Other)
  Sender: FDA-Public Use
  Company Number: HR-PFIZER INC-2019305960

PATIENT
  Age: 90 Year
  Sex: Female
  Weight: 76 kg

DRUGS (5)
  1. TRIPLIXAM [Concomitant]
     Active Substance: AMLODIPINE BESYLATE\INDAPAMIDE\PERINDOPRIL ARGININE
     Indication: ESSENTIAL HYPERTENSION
     Dosage: 1 DF, UNK, (DF = 1.25 MG INDAPAMIDE + 5 MG AMLODIPINE BESILATE + 5 MG PERINDOPRIL ARGININE)
     Route: 048
     Dates: start: 20171121
  2. SORTIS [Suspect]
     Active Substance: ATORVASTATIN
     Indication: ARRHYTHMIA
     Dosage: 80 MG, 1X/DAY
     Route: 048
     Dates: start: 20190315, end: 20190321
  3. TINIDIL [Concomitant]
     Active Substance: ISOSORBIDE DINITRATE
     Dosage: 2.5 MG, UNK
     Route: 060
  4. LUBOR [Concomitant]
     Indication: ARTHRALGIA
     Dosage: UNK
  5. ANDOL PRO [Concomitant]
     Dosage: 75 MG, UNK
     Route: 048
     Dates: start: 2017

REACTIONS (13)
  - Angina pectoris [Recovered/Resolved]
  - Product use in unapproved indication [Unknown]
  - Chest pain [Recovered/Resolved]
  - Oedema peripheral [Recovered/Resolved]
  - Off label use [Unknown]
  - Oedema peripheral [Recovered/Resolved]
  - Cardiac discomfort [Recovered/Resolved]
  - Confusional state [Recovered/Resolved]
  - Disorientation [Recovered/Resolved]
  - Pain in extremity [Recovered/Resolved]
  - Memory impairment [Recovered/Resolved]
  - Myalgia [Recovered/Resolved]
  - Insomnia [Recovered/Resolved]

NARRATIVE: CASE EVENT DATE: 201903
